FAERS Safety Report 5827107-6 (Version None)
Quarter: 2008Q3

REPORT INFORMATION
  Report Type: 
  Country: None (occurrence: None)
  Receive Date: 20080729
  Receipt Date: 20080729
  Transmission Date: 20090109
  Serious: Yes (Hospitalization)
  Sender: FDA-Public Use
  Company Number: None

PATIENT
  Sex: Female
  Weight: 63 kg

DRUGS (4)
  1. FLUOROURACIL [Suspect]
     Dosage: 7200 MG
     Dates: end: 20080625
  2. BEVACIZUMAB (RHUMAB VEGF) [Suspect]
     Dosage: 0 MG
     Dates: end: 20080514
  3. CAMPTOSAR [Suspect]
     Dosage: 477 MG
     Dates: end: 20080625
  4. LEUCOVORIN CALCIUM [Suspect]
     Dosage: 1300 MG
     Dates: end: 20080625

REACTIONS (3)
  - ASTHENIA [None]
  - LOBAR PNEUMONIA [None]
  - NO THERAPEUTIC RESPONSE [None]
